FAERS Safety Report 6067031-X (Version None)
Quarter: 2009Q1

REPORT INFORMATION
  Report Type: 
  Country: None (occurrence: None)
  Receive Date: 20090205
  Receipt Date: 20090128
  Transmission Date: 20090719
  Serious: Yes (Hospitalization)
  Sender: FDA-Public Use
  Company Number: BR-ROCHE-611399

PATIENT
  Sex: Female
  Weight: 49 kg

DRUGS (4)
  1. CLONAZEPAM [Suspect]
     Dosage: BATCH NUMBER: RJ0411
     Route: 048
     Dates: start: 20080801
  2. CLONAZEPAM [Suspect]
     Dosage: SOMETIMES THE PATIENT TOOK 1-2 TABS.
     Route: 048
  3. DIAZEPAM [Suspect]
     Route: 065
     Dates: start: 20080101, end: 20080101
  4. PAROXETINE HCL [Concomitant]
     Indication: DEPRESSION
     Dates: start: 20080601

REACTIONS (9)
  - DEPRESSED MOOD [None]
  - DIZZINESS [None]
  - DRUG INEFFECTIVE [None]
  - DYSARTHRIA [None]
  - HALLUCINATION [None]
  - HEADACHE [None]
  - LUNG INFECTION [None]
  - SYNCOPE [None]
  - TACHYCARDIA [None]
